FAERS Safety Report 18043155 (Version 2)
Quarter: 2020Q3

REPORT INFORMATION
  Report Type: Spontaneous
  Country: US (occurrence: US)
  Receive Date: 20200720
  Receipt Date: 20200727
  Transmission Date: 20201103
  Serious: No
  Sender: FDA-Public Use
  Company Number: US-PFIZER INC-2020275067

PATIENT
  Age: 63 Year
  Sex: Female

DRUGS (15)
  1. SUCROSE [Suspect]
     Active Substance: SUCROSE
     Dosage: UNK
  2. CODEINE [Suspect]
     Active Substance: CODEINE
     Dosage: UNK
  3. THIMEROSAL [Suspect]
     Active Substance: THIMEROSAL
     Dosage: UNK
  4. TRAMADOL. [Suspect]
     Active Substance: TRAMADOL
     Dosage: UNK
  5. COLESEVELAM [Suspect]
     Active Substance: COLESEVELAM
     Dosage: UNK
  6. PALLADIUM [Suspect]
     Active Substance: PALLADIUM
     Dosage: UNK
  7. GLUCOSE [Suspect]
     Active Substance: DEXTROSE
     Dosage: UNK
  8. NABUMETONE. [Suspect]
     Active Substance: NABUMETONE
     Dosage: UNK
  9. PSYLLIUM FIBRE [Suspect]
     Active Substance: HERBALS\PLANTAGO OVATA SEED COAT
     Dosage: UNK
  10. SULFAMETHOXAZOLE/TRIMETHOPRIM [Suspect]
     Active Substance: SULFAMETHOXAZOLE\TRIMETHOPRIM
     Dosage: UNK
  11. NICKEL [Suspect]
     Active Substance: NICKEL
     Dosage: UNK
  12. DICLOFENAC EPOLAMINE [Suspect]
     Active Substance: DICLOFENAC EPOLAMINE
     Dosage: UNK
  13. NIACIN. [Suspect]
     Active Substance: NIACIN
     Dosage: UNK
  14. COBALT [Suspect]
     Active Substance: COBALT
     Dosage: UNK
  15. PIOGLITAZONE. [Suspect]
     Active Substance: PIOGLITAZONE
     Dosage: UNK

REACTIONS (1)
  - Drug hypersensitivity [Unknown]
